FAERS Safety Report 11733463 (Version 1)
Quarter: 2015Q4

REPORT INFORMATION
  Report Type: Spontaneous
  Country: US (occurrence: US)
  Receive Date: 20151110
  Receipt Date: 20151110
  Transmission Date: 20160304
  Serious: No
  Sender: FDA-Public Use
  Company Number: US-ELI_LILLY_AND_COMPANY-US201205005968

PATIENT
  Sex: Female

DRUGS (2)
  1. FORTEO [Suspect]
     Active Substance: TERIPARATIDE
     Dosage: UNK, WEEKLY (1/W)
     Route: 065
  2. FORTEO [Suspect]
     Active Substance: TERIPARATIDE
     Indication: OSTEOPOROSIS
     Dosage: UNK, QD
     Route: 065

REACTIONS (9)
  - Rash [Unknown]
  - Pain [Unknown]
  - Adverse event [Unknown]
  - Asthenia [Unknown]
  - Headache [Unknown]
  - Vomiting [Unknown]
  - Hypophagia [Unknown]
  - Apathy [Unknown]
  - Nausea [Unknown]
